FAERS Safety Report 5151271-8 (Version None)
Quarter: 2006Q4

REPORT INFORMATION
  Report Type: 
  Country: None (occurrence: None)
  Receive Date: 20061115
  Receipt Date: 20061106
  Transmission Date: 20070319
  Serious: Yes (Other)
  Sender: FDA-Public Use
  Company Number: AU-GLAXOSMITHKLINE-B0445436A

PATIENT
  Sex: Male

DRUGS (1)
  1. NICABATE CQ 4MG LOZENGE [Suspect]
     Indication: SMOKING CESSATION THERAPY
     Route: 002
     Dates: start: 20061023, end: 20061024

REACTIONS (4)
  - EPISTAXIS [None]
  - HOT FLUSH [None]
  - LOSS OF CONSCIOUSNESS [None]
  - VOMITING [None]
